FAERS Safety Report 7392483-2 (Version None)
Quarter: 2011Q2

REPORT INFORMATION
  Report Type: 
  Country: None (occurrence: None)
  Receive Date: 20110404
  Receipt Date: 20110321
  Transmission Date: 20111010
  Serious: Yes (Other)
  Sender: FDA-Public Use
  Company Number: US-JNJFOC-20110311105

PATIENT
  Sex: Female

DRUGS (2)
  1. ROGAINE EXTRA STRENGTH (FOR MEN) [Suspect]
     Route: 061
  2. ROGAINE EXTRA STRENGTH (FOR MEN) [Suspect]
     Indication: HAIR GROWTH ABNORMAL
     Dosage: 2X
     Route: 061

REACTIONS (3)
  - HALLUCINATION [None]
  - WRONG DRUG ADMINISTERED [None]
  - APPLICATION SITE HYPERSENSITIVITY [None]
